FAERS Safety Report 4307390-9 (Version None)
Quarter: 2004Q1

REPORT INFORMATION
  Report Type: 
  Country: None (occurrence: None)
  Receive Date: 20040226
  Receipt Date: 20040214
  Transmission Date: 20041129
  Serious: Yes (Other)
  Sender: FDA-Public Use
  Company Number: 2004005558

PATIENT
  Age: 40 Year
  Sex: Female
  Weight: 54.8852 kg

DRUGS (9)
  1. DILANTIN KAPSEAL [Suspect]
     Indication: CONVULSION
     Dosage: 400 MG (QID), ORAL
     Route: 048
  2. NEURONTIN [Suspect]
     Indication: CONVULSION
     Dosage: 900 MG (TID), ORAL
     Route: 048
  3. PRIMIDONE [Concomitant]
  4. CARBAMAZEPINE [Concomitant]
  5. RANITIDINE [Concomitant]
  6. ALPRAZOLAM [Concomitant]
  7. LEVOTHYROXINE SODIUM [Concomitant]
  8. FLUOXETINE HCL [Concomitant]
  9. LOVASTATIN [Concomitant]

REACTIONS (3)
  - CONVULSION [None]
  - PHARMACEUTICAL PRODUCT COMPLAINT [None]
  - TREATMENT NONCOMPLIANCE [None]
